FAERS Safety Report 5499851-4 (Version None)
Quarter: 2007Q4

REPORT INFORMATION
  Report Type: 
  Country: None (occurrence: None)
  Receive Date: 20071026
  Receipt Date: 20071016
  Transmission Date: 20080405
  Serious: Yes (Life-Threatening, Other)
  Sender: FDA-Public Use
  Company Number: CA-PFIZER INC-2007084063

PATIENT
  Age: 63 Year
  Sex: Female
  Weight: 72.4 kg

DRUGS (2)
  1. CYCLOKAPRON (IV) [Suspect]
     Dates: start: 20070224, end: 20070227
  2. PAXIL [Concomitant]

REACTIONS (1)
  - TRANSIENT ISCHAEMIC ATTACK [None]
